FAERS Safety Report 24085949 (Version 1)
Quarter: 2024Q3

REPORT INFORMATION
  Report Type: Spontaneous
  Country: US (occurrence: US)
  Receive Date: 20240712
  Receipt Date: 20240712
  Transmission Date: 20241016
  Serious: Yes (Other)
  Sender: AMERICAN REGENT
  Company Number: US-AMERICAN REGENT INC-2024002608

PATIENT
  Age: 45 Year
  Sex: Female
  Weight: 83.4 kg

DRUGS (5)
  1. VENOFER [Suspect]
     Active Substance: IRON SUCROSE
     Indication: Anaemia
     Dosage: 100 MILLIGRAM, SINGLE
     Dates: start: 20240408, end: 20240408
  2. MIRCERA [Suspect]
     Active Substance: METHOXY POLYETHYLENE GLYCOL-EPOETIN BETA
     Indication: Nephrogenic anaemia
     Dosage: 50 MICROGRAM, (1 IN 2 WEEKS)
     Dates: start: 20240411, end: 20240411
  3. MIRCERA [Suspect]
     Active Substance: METHOXY POLYETHYLENE GLYCOL-EPOETIN BETA
     Dosage: 100 MICROGRAM, (1 IN 2 WEEKS)
     Dates: start: 20240422, end: 20240422
  4. CALCITRIOL [Concomitant]
     Active Substance: CALCITRIOL
     Indication: Bone disorder
     Dosage: 0.25 (UNSPECIFIED UNIT)
     Route: 048
     Dates: start: 20240410, end: 20240519
  5. HEPARIN [Concomitant]
     Active Substance: HEPARIN SODIUM
     Indication: Anticoagulant therapy
     Dosage: 6000 INTERNATIONAL UNIT
     Route: 040
     Dates: start: 20240405

REACTIONS (1)
  - Drug hypersensitivity [Recovered/Resolved]

NARRATIVE: CASE EVENT DATE: 20240422
